FAERS Safety Report 5603304-X (Version None)
Quarter: 2008Q1

REPORT INFORMATION
  Report Type: 
  Country: None (occurrence: None)
  Receive Date: 20080123
  Receipt Date: 20080117
  Transmission Date: 20080703
  Serious: Yes (Hospitalization, Other)
  Sender: FDA-Public Use
  Company Number: 2008SP001489

PATIENT
  Age: 53 Year
  Sex: Female

DRUGS (1)
  1. PEG-INTRON REDIPEN (PEGINTERFERON ALFA-2B W/RIBAVIRIN) [Suspect]
     Indication: HEPATITIS C
     Dosage: 120 MCG; QW; SC, ; PO

REACTIONS (4)
  - DEHYDRATION [None]
  - DIARRHOEA [None]
  - GASTROINTESTINAL INFECTION [None]
  - VOMITING [None]
